FAERS Safety Report 6932572-7 (Version None)
Quarter: 2010Q3

REPORT INFORMATION
  Report Type: 
  Country: None (occurrence: None)
  Receive Date: 20100819
  Receipt Date: 20100811
  Transmission Date: 20110219
  Serious: Yes (Other)
  Sender: FDA-Public Use
  Company Number: ES-AMGEN-QUU424187

PATIENT
  Sex: Female

DRUGS (8)
  1. ARANESP [Suspect]
     Indication: DIALYSIS
     Route: 058
     Dates: start: 20100218, end: 20100714
  2. TEGRETOL [Suspect]
     Route: 048
     Dates: end: 20100714
  3. UNSPECIFIED MEDICATION [Concomitant]
     Dates: start: 20091118
  4. OMEPRAZOLE [Concomitant]
     Route: 048
  5. UNSPECIFIED MEDICATION [Concomitant]
     Route: 048
  6. ASPIRIN [Concomitant]
     Route: 048
  7. ATORVASTATIN CALCIUM [Concomitant]
     Route: 048
  8. FOLIC ACID [Concomitant]
     Route: 048

REACTIONS (3)
  - APLASIA PURE RED CELL [None]
  - RETICULOCYTE COUNT DECREASED [None]
  - THERAPEUTIC RESPONSE DECREASED [None]
